FAERS Safety Report 12886847 (Version 1)
Quarter: 2016Q4

REPORT INFORMATION
  Report Type: Not Available
  Country: US (occurrence: US)
  Receive Date: 20161026
  Receipt Date: 20161026
  Transmission Date: 20170207
  Serious: No
  Sender: FDA-Public Use
  Company Number: US-3M-2016-US-002476

PATIENT
  Sex: Male

DRUGS (1)
  1. PERIDEX [Suspect]
     Active Substance: CHLORHEXIDINE GLUCONATE
     Dosage: RINSED PRIOR TO PROCEDURE
     Route: 048

REACTIONS (1)
  - Sensitivity of teeth [Unknown]
